FAERS Safety Report 5261236-3 (Version None)
Quarter: 2007Q1

REPORT INFORMATION
  Report Type: 
  Country: None (occurrence: None)
  Receive Date: 20070309
  Receipt Date: 20070228
  Transmission Date: 20070707
  Serious: Yes (Hospitalization, Other)
  Sender: FDA-Public Use
  Company Number: US-PFIZER INC-2007016244

PATIENT
  Sex: Female
  Weight: 76.2 kg

DRUGS (2)
  1. XALATAN [Suspect]
     Indication: GLAUCOMA
     Route: 047
  2. ANTIHYPERTENSIVES [Concomitant]

REACTIONS (2)
  - CATARACT [None]
  - VISION BLURRED [None]
